FAERS Safety Report 22117195 (Version 1)
Quarter: 2023Q1

REPORT INFORMATION
  Report Type: Spontaneous
  Country: JP (occurrence: JP)
  Receive Date: 20230320
  Receipt Date: 20230320
  Transmission Date: 20230418
  Serious: Yes (Hospitalization, Other)
  Sender: FDA-Public Use
  Company Number: JP-BAYER-2023A033715

PATIENT
  Age: 84 Year
  Sex: Male

DRUGS (2)
  1. XARELTO [Interacting]
     Active Substance: RIVAROXABAN
     Indication: Atrial fibrillation
     Route: 048
  2. CILOSTAZOL [Interacting]
     Active Substance: CILOSTAZOL
     Indication: Cerebral infarction
     Route: 048

REACTIONS (5)
  - Haemobilia [Recovering/Resolving]
  - Cholangitis [Recovering/Resolving]
  - Labelled drug-drug interaction medication error [Unknown]
  - Vascular pseudoaneurysm ruptured [Unknown]
  - Haemobilia [Unknown]
